FAERS Safety Report 8227760-6 (Version None)
Quarter: 2012Q1

REPORT INFORMATION
  Report Type: 
  Country: None (occurrence: None)
  Receive Date: 20120322
  Receipt Date: 20120316
  Transmission Date: 20120608
  Serious: Yes (Other)
  Sender: FDA-Public Use
  Company Number: DE-PFIZER INC-2012069052

PATIENT
  Age: 41 Year
  Sex: Female
  Weight: 104 kg

DRUGS (2)
  1. CIPROFLOXACIN [Suspect]
     Indication: DIVERTICULITIS
     Dosage: 500 DF, 2X/DAY
     Route: 042
     Dates: start: 20111011, end: 20111012
  2. AMPICILLIN AND SULBACTAM [Suspect]
     Indication: DIVERTICULITIS
     Dosage: 1.5 G, 3X/DAY
     Route: 042
     Dates: start: 20111009, end: 20111010

REACTIONS (4)
  - LIP SWELLING [None]
  - RASH [None]
  - SPEECH DISORDER [None]
  - SWOLLEN TONGUE [None]
